FAERS Safety Report 13763923 (Version 2)
Quarter: 2017Q3

REPORT INFORMATION
  Report Type: Report from Study
  Country: US (occurrence: US)
  Receive Date: 20170718
  Receipt Date: 20170728
  Transmission Date: 20171127
  Serious: Yes (Hospitalization, Other)
  Sender: FDA-Public Use
  Company Number: US-GILEAD-2017-0283594

PATIENT
  Age: 55 Year
  Sex: Male

DRUGS (5)
  1. COUMADIN [Concomitant]
     Active Substance: WARFARIN SODIUM
  2. SILDENAFIL CITRATE. [Concomitant]
     Active Substance: SILDENAFIL CITRATE
  3. AMBRISENTAN [Suspect]
     Active Substance: AMBRISENTAN
     Indication: PRODUCT USED FOR UNKNOWN INDICATION
     Dosage: 10 MG, QD
     Route: 065
     Dates: start: 20150226
  4. ADEMPAS [Concomitant]
     Active Substance: RIOCIGUAT
  5. TYVASO [Concomitant]
     Active Substance: TREPROSTINIL

REACTIONS (6)
  - Gallbladder disorder [Unknown]
  - Head injury [Unknown]
  - Product use issue [Unknown]
  - Vomiting [Unknown]
  - Syncope [Unknown]
  - Weight decreased [Unknown]
